FAERS Safety Report 6820999-3 (Version None)
Quarter: 2010Q3

REPORT INFORMATION
  Report Type: 
  Country: None (occurrence: None)
  Receive Date: 20100707
  Receipt Date: 20070814
  Transmission Date: 20110219
  Serious: No
  Sender: FDA-Public Use
  Company Number: US-PFIZER INC-2007067963

PATIENT
  Sex: Female
  Weight: 75 kg

DRUGS (2)
  1. ZOLOFT [Suspect]
     Indication: PANIC ATTACK
     Dates: start: 20040101
  2. ZOLOFT [Suspect]
     Indication: ANXIETY

REACTIONS (7)
  - AGITATION [None]
  - CRYING [None]
  - DIZZINESS [None]
  - HEADACHE [None]
  - NAUSEA [None]
  - NERVOUSNESS [None]
  - WEIGHT INCREASED [None]
